FAERS Safety Report 4381392-9 (Version None)
Quarter: 2004Q2

REPORT INFORMATION
  Report Type: 
  Country: None (occurrence: None)
  Receive Date: 20040617
  Receipt Date: 20040617
  Transmission Date: 20050107
  Serious: No
  Sender: FDA-Public Use
  Company Number: None

PATIENT
  Age: 54 Year
  Sex: Female
  Weight: 90 kg

DRUGS (7)
  1. GAMMAGARD S/D [Suspect]
     Indication: VASCULITIS
     Dosage: 5% SOLN 35 GM OVER 3 HRS
     Dates: start: 20040511
  2. GAMMAGARD S/D [Suspect]
     Indication: VASCULITIS
     Dosage: 5% SOLN 35 GM OVER 3 HRS
     Dates: start: 20040512
  3. GAMMAGARD S/D [Suspect]
     Indication: VASCULITIS
     Dosage: 5% SOLN 35 GM OVER 3 HRS
     Dates: start: 20040513
  4. GAMMAGARD S/D [Suspect]
  5. GAMMAGARD S/D [Suspect]
     Indication: ENCEPHALITIS
     Dosage: 5% SOLN 35 GM OVER 3 HRS
     Dates: start: 20040511
  6. GAMMAGARD S/D [Suspect]
     Indication: ENCEPHALITIS
     Dosage: 5% SOLN 35 GM OVER 3 HRS
     Dates: start: 20040512
  7. GAMMAGARD S/D [Suspect]
     Indication: ENCEPHALITIS
     Dosage: 5% SOLN 35 GM OVER 3 HRS
     Dates: start: 20040513

REACTIONS (2)
  - DEEP VEIN THROMBOSIS [None]
  - THROMBOPHLEBITIS SUPERFICIAL [None]
